FAERS Safety Report 9053512 (Version 2)
Quarter: 2013Q2

REPORT INFORMATION
  Report Type: Spontaneous
  Country: US (occurrence: US)
  Receive Date: 20130208
  Receipt Date: 20130604
  Transmission Date: 20140414
  Serious: Yes (Death, Other)
  Sender: FDA-Public Use
  Company Number: PHEH2013US003033

PATIENT
  Age: 44 Year
  Sex: Female
  Weight: 71.5 kg

DRUGS (10)
  1. ZOMETA [Suspect]
     Indication: METASTASES TO BONE
     Dosage: 4 MG, OF 3 MONTH
     Route: 042
     Dates: start: 20120425, end: 20120723
  2. EPIRUBICIN [Concomitant]
     Dosage: 50 MG/M2, DAY ONE
     Dates: start: 20120111
  3. CISPLATIN [Concomitant]
     Dosage: 60 MG/M2, DAY ONE
     Dates: start: 20120111
  4. CISPLATIN [Concomitant]
     Dosage: UNK UKN, UNK
     Dates: start: 20120425, end: 201205
  5. CAPECITABINE [Concomitant]
     Dosage: 625 MG/M2, TWICE DAILY CONTINUOUS CYCLE EVERY TWENTY-ONE DAYS
     Dates: start: 20120111
  6. CAPECITABINE [Concomitant]
     Dosage: UNK UKN, UNK
     Dates: start: 20120425, end: 201205
  7. CHEMOTHERAPEUTICS [Concomitant]
     Dosage: UNK UKN, UNK
  8. DOXORUBICIN [Concomitant]
     Dosage: UNK UKN, UNK
     Dates: start: 20120425, end: 201205
  9. OTHER ANTIEMETICS [Concomitant]
     Indication: NAUSEA
     Dosage: UNK UKN, UNK
  10. XELODA [Concomitant]
     Dosage: UNK UKN, UNK

REACTIONS (12)
  - Metastatic gastric cancer [Fatal]
  - Malignant neoplasm progression [Fatal]
  - Ascites [Unknown]
  - Pleural effusion [Unknown]
  - Heart rate increased [Unknown]
  - Oral disorder [Unknown]
  - Lymphadenopathy [Unknown]
  - Hilar lymphadenopathy [Unknown]
  - Lung disorder [Unknown]
  - Anaemia [Unknown]
  - Blood pressure increased [Unknown]
  - Asthenia [Unknown]
